FAERS Safety Report 5098740-7 (Version None)
Quarter: 2006Q3

REPORT INFORMATION
  Report Type: 
  Country: None (occurrence: None)
  Receive Date: 20060907
  Receipt Date: 20060823
  Transmission Date: 20061208
  Serious: Yes (Other)
  Sender: FDA-Public Use
  Company Number: US-GLAXOSMITHKLINE-A0618007A

PATIENT
  Age: 53 Year
  Sex: Female

DRUGS (3)
  1. LAMICTAL [Suspect]
     Route: 048
     Dates: start: 20060503
  2. WELLBUTRIN SR [Concomitant]
     Dosage: 200MG PER DAY
     Route: 048
     Dates: start: 20060101, end: 20060705
  3. SEROQUEL [Concomitant]
     Dosage: 25MG AT NIGHT
     Route: 048
     Dates: start: 20060530, end: 20060616

REACTIONS (4)
  - BRONCHITIS [None]
  - INFECTION [None]
  - PNEUMONIA [None]
  - UPPER RESPIRATORY TRACT INFECTION [None]
